FAERS Safety Report 16201713 (Version 1)
Quarter: 2019Q2

REPORT INFORMATION
  Report Type: Spontaneous
  Country: GB (occurrence: GB)
  Receive Date: 20190416
  Receipt Date: 20190416
  Transmission Date: 20190711
  Serious: Yes (Other)
  Sender: FDA-Public Use
  Company Number: GB-FERRINGPH-2019FE02061

PATIENT

DRUGS (2)
  1. NOQDIRNA [Suspect]
     Active Substance: DESMOPRESSIN ACETATE
     Indication: NOCTURIA
     Dosage: 12.5 ?G, UNK
     Route: 002
  2. NOQDIRNA [Suspect]
     Active Substance: DESMOPRESSIN ACETATE
     Dosage: 25 ?G, UNK
     Route: 002

REACTIONS (3)
  - Wrong technique in product usage process [Recovered/Resolved]
  - Hypertension [Recovered/Resolved]
  - Underdose [Unknown]
